FAERS Safety Report 7319617-X (Version None)
Quarter: 2011Q1

REPORT INFORMATION
  Report Type: 
  Country: None (occurrence: None)
  Receive Date: 20110228
  Receipt Date: 20100615
  Transmission Date: 20110831
  Serious: No
  Sender: FDA-Public Use
  Company Number: A0865276A

PATIENT
  Age: 45 Year
  Sex: Female

DRUGS (5)
  1. LAMICTAL [Suspect]
     Indication: PARTIAL SEIZURES
     Dosage: 100MG TWICE PER DAY
     Route: 048
     Dates: start: 20060901, end: 20060101
  2. ABILIFY [Concomitant]
  3. UNSPECIFIED DRUG [Concomitant]
  4. LAMOTRIGINE [Suspect]
     Indication: PARTIAL SEIZURES
     Dosage: 25MG TWICE PER DAY
     Route: 048
  5. MULTI-VITAMIN [Concomitant]

REACTIONS (4)
  - CHEILITIS [None]
  - OROPHARYNGEAL PAIN [None]
  - APHTHOUS STOMATITIS [None]
  - RASH [None]
